FAERS Safety Report 10692139 (Version 2)
Quarter: 2015Q1

REPORT INFORMATION
  Report Type: Report from Study
  Country: TR (occurrence: TR)
  Receive Date: 20150106
  Receipt Date: 20150224
  Transmission Date: 20150720
  Serious: Yes (Hospitalization)
  Sender: FDA-Public Use
  Company Number: TR-EMD SERONO-8003475

PATIENT
  Age: 43 Year
  Sex: Female
  Weight: 70 kg

DRUGS (3)
  1. REBIF [Suspect]
     Active Substance: INTERFERON BETA-1A
     Indication: MULTIPLE SCLEROSIS
     Dates: start: 2001
  2. NEURONTIN [Concomitant]
     Active Substance: GABAPENTIN
     Indication: HYPOAESTHESIA
  3. NEURONTIN [Concomitant]
     Active Substance: GABAPENTIN
     Indication: MUSCLE CONTRACTURE

REACTIONS (9)
  - Tremor [Not Recovered/Not Resolved]
  - Encephalopathy [Unknown]
  - Injection site mass [Not Recovered/Not Resolved]
  - Asthenia [Not Recovered/Not Resolved]
  - Injection site bruising [Not Recovered/Not Resolved]
  - Chills [Not Recovered/Not Resolved]
  - Injection site erythema [Not Recovered/Not Resolved]
  - Injection site pain [Not Recovered/Not Resolved]
  - Fatigue [Not Recovered/Not Resolved]

NARRATIVE: CASE EVENT DATE: 2004
